FAERS Safety Report 9298376 (Version 1)
Quarter: 2012Q4

REPORT INFORMATION
  Report Type: Spontaneous
  Country: US (occurrence: None)
  Receive Date: 20121015
  Receipt Date: 20121015
  Transmission Date: 20130627
  Serious: No
  Sender: FDA-Public Use
  Company Number: 2012-00154

PATIENT
  Age: 84 Year
  Sex: Female

DRUGS (2)
  1. ZICAM COLD REMEDY RAPIDMELTS [Suspect]
     Indication: COLD
     Dates: start: 20120909, end: 20120911
  2. MUCINEX [Concomitant]

REACTIONS (1)
  - Ageusia [None]
